FAERS Safety Report 14903609 (Version 1)
Quarter: 2018Q2

REPORT INFORMATION
  Report Type: Report from Study
  Country: US (occurrence: ZA)
  Receive Date: 20180516
  Receipt Date: 20180516
  Transmission Date: 20180711
  Serious: Yes (Hospitalization, Other)
  Sender: FDA-Public Use
  Company Number: US-SUNOVION-2018SUN001946

PATIENT
  Sex: Female

DRUGS (1)
  1. INDACATEROL [Suspect]
     Active Substance: INDACATEROL
     Indication: ASTHMA
     Dosage: 150 ?G, UNK
     Route: 055
     Dates: start: 20180426

REACTIONS (2)
  - Gastrointestinal infection [Unknown]
  - Renal failure [Unknown]
